FAERS Safety Report 6354460-X (Version None)
Quarter: 2009Q3

REPORT INFORMATION
  Report Type: 
  Country: None (occurrence: None)
  Receive Date: 20090909
  Receipt Date: 20090827
  Transmission Date: 20100115
  Serious: Yes (Death)
  Sender: FDA-Public Use
  Company Number: 2009MB000062

PATIENT
  Age: 39 Year
  Sex: Male

DRUGS (1)
  1. MOXATAG [Suspect]
     Indication: STREPTOCOCCAL INFECTION
     Dosage: 775 MG
     Dates: start: 20090813, end: 20090813

REACTIONS (3)
  - EYE ROLLING [None]
  - FALL [None]
  - FOAMING AT MOUTH [None]
